FAERS Safety Report 16281592 (Version 2)
Quarter: 2019Q2

REPORT INFORMATION
  Report Type: Spontaneous
  Country: US (occurrence: US)
  Receive Date: 20190507
  Receipt Date: 20190628
  Transmission Date: 20190711
  Serious: No
  Sender: FDA-Public Use
  Company Number: US-PFIZER INC-2019188127

PATIENT
  Sex: Female
  Weight: 50.35 kg

DRUGS (2)
  1. PREMARIN [Suspect]
     Active Substance: ESTROGENS, CONJUGATED
     Indication: CLUSTER HEADACHE
     Dosage: 0.625 MG, UNK
     Route: 048
  2. HYZAAR [Concomitant]
     Active Substance: HYDROCHLOROTHIAZIDE\LOSARTAN POTASSIUM
     Indication: HYPERTENSION
     Dosage: 50 MG, UNK

REACTIONS (3)
  - Malaise [Unknown]
  - Drug effective for unapproved indication [Unknown]
  - Off label use [Unknown]
